FAERS Safety Report 9094270 (Version 1)
Quarter: 2013Q1

REPORT INFORMATION
  Report Type: Spontaneous
  Country: US (occurrence: US)
  Receive Date: 20130219
  Receipt Date: 20130219
  Transmission Date: 20140127
  Serious: Yes (Hospitalization, Other)
  Sender: FDA-Public Use
  Company Number: US-BAYER-2013-020320

PATIENT
  Age: 38 Year
  Sex: Female
  Weight: 74.83 kg

DRUGS (10)
  1. YAZ [Suspect]
  2. BEYAZ [Suspect]
  3. YASMIN [Suspect]
  4. GIANVI [Suspect]
  5. OCELLA [Suspect]
  6. DOXYCYCLINE [Concomitant]
     Indication: SINUSITIS
     Dosage: 100 MG, 1 2 TIMES A DAY [20
     Route: 048
     Dates: start: 20111117
  7. EXEDRIN TENSION WITH IBUPROFEN [Concomitant]
     Indication: HEADACHE
     Dosage: 6-800MG
  8. ZOLOFT [Concomitant]
     Indication: DEPRESSION
     Dosage: 100 MG, DAILY
  9. IBUPROFEN [Concomitant]
     Indication: PAIN
     Dosage: AS NEEDED
  10. MOXIFLOXACIN [Concomitant]

REACTIONS (2)
  - Pulmonary embolism [Recovered/Resolved]
  - Thrombophlebitis superficial [None]
